FAERS Safety Report 26168072 (Version 1)
Quarter: 2025Q4

REPORT INFORMATION
  Report Type: Spontaneous
  Country: US (occurrence: US)
  Receive Date: 20251217
  Receipt Date: 20251217
  Transmission Date: 20260117
  Serious: No
  Sender: ROCHE
  Company Number: US-ROCHE-10000453259

PATIENT
  Age: 48 Year
  Sex: Female
  Weight: 56.9 kg

DRUGS (1)
  1. KADCYLA [Suspect]
     Active Substance: ADO-TRASTUZUMAB EMTANSINE
     Indication: Hormone receptor positive breast cancer
     Route: 042
     Dates: start: 20250923

REACTIONS (4)
  - Device leakage [Unknown]
  - Blood calcium increased [Unknown]
  - Blood alkaline phosphatase increased [Unknown]
  - Wrong technique in product usage process [Unknown]
